FAERS Safety Report 16841683 (Version 1)
Quarter: 2019Q3

REPORT INFORMATION
  Report Type: Spontaneous
  Country: US (occurrence: US)
  Receive Date: 20190923
  Receipt Date: 20190923
  Transmission Date: 20191005
  Serious: Yes (Hospitalization)
  Sender: FDA-Public Use
  Company Number: US-B.I. PHARMACEUTICALS,INC./RIDGEFIELD-2019-BI-103720

PATIENT

DRUGS (1)
  1. PRADAXA [Suspect]
     Active Substance: DABIGATRAN ETEXILATE MESYLATE
     Indication: ATRIAL FIBRILLATION
     Route: 065
     Dates: start: 201112

REACTIONS (4)
  - Cardiac tamponade [Unknown]
  - Pericardial haemorrhage [Unknown]
  - Pericardial excision [Unknown]
  - Mediastinal haematoma [Unknown]

NARRATIVE: CASE EVENT DATE: 20160922
